FAERS Safety Report 8596879-2 (Version None)
Quarter: 2012Q3

REPORT INFORMATION
  Report Type: 
  Country: None (occurrence: None)
  Receive Date: 20120815
  Receipt Date: 20120809
  Transmission Date: 20120928
  Serious: Yes (Hospitalization, Other)
  Sender: FDA-Public Use
  Company Number: US-BAXTER-2012BAX014311

PATIENT
  Age: 61 Year
  Sex: Female

DRUGS (5)
  1. SILDENAFIL [Concomitant]
  2. PREDNISONE TAB [Concomitant]
     Indication: GLOMERULONEPHRITIS RAPIDLY PROGRESSIVE
  3. CYCLOPHOSPHAMIDE [Suspect]
     Indication: GLOMERULONEPHRITIS RAPIDLY PROGRESSIVE
  4. METHYLPREDNISOLONE [Concomitant]
     Indication: GLOMERULONEPHRITIS RAPIDLY PROGRESSIVE
  5. LETAIRIS [Concomitant]

REACTIONS (1)
  - CARDIOMYOPATHY [None]
